FAERS Safety Report 8444588 (Version 2)
Quarter: 2015Q1

REPORT INFORMATION
  Report Type: Spontaneous
  Country: CA (occurrence: CA)
  Receive Date: 20120307
  Receipt Date: 20150107
  Transmission Date: 20150721
  Serious: Yes (Other)
  Sender: FDA-Public Use
  Company Number: CA-COVIDIEN/TYCO HEALTHCARE/MALLINCKRODT-T201200759

PATIENT
  Age: 32 Year
  Sex: Male

DRUGS (1)
  1. OPTIRAY [Suspect]
     Active Substance: IOVERSOL
     Indication: COMPUTERISED TOMOGRAM
     Dosage: 80 ML, 3 CC/SEC
     Route: 042

REACTIONS (5)
  - Ocular hyperaemia [Unknown]
  - Eyelid oedema [Unknown]
  - Cough [Unknown]
  - Wheezing [Unknown]
  - Nasal congestion [Unknown]

NARRATIVE: CASE EVENT DATE: 20100909
